FAERS Safety Report 16434506 (Version 1)
Quarter: 2019Q2

REPORT INFORMATION
  Report Type: Spontaneous
  Country: US (occurrence: US)
  Receive Date: 20190614
  Receipt Date: 20190614
  Transmission Date: 20190711
  Serious: No
  Sender: FDA-Public Use
  Company Number: US-JNJFOC-20170205013

PATIENT
  Age: 81 Year
  Sex: Male

DRUGS (1)
  1. FENTANYL TRANSDERMAL SYSTEM [Suspect]
     Active Substance: FENTANYL
     Indication: CANCER PAIN
     Route: 062
     Dates: start: 20050730

REACTIONS (3)
  - Product complaint [Unknown]
  - Device leakage [Unknown]
  - Drug ineffective [Unknown]

NARRATIVE: CASE EVENT DATE: 200507
